FAERS Safety Report 17769776 (Version 6)
Quarter: 2021Q1

REPORT INFORMATION
  Report Type: Spontaneous
  Country: US (occurrence: US)
  Receive Date: 20200512
  Receipt Date: 20210225
  Transmission Date: 20210419
  Serious: Yes (Other)
  Sender: FDA-Public Use
  Company Number: US-PFIZER INC-2020188452

PATIENT
  Age: 58 Year
  Sex: Female

DRUGS (4)
  1. XELJANZ XR [Suspect]
     Active Substance: TOFACITINIB CITRATE
     Dosage: 11 MG, 1X/DAY
     Route: 048
     Dates: start: 201902
  2. PREDNISONE. [Concomitant]
     Active Substance: PREDNISONE
     Dosage: UNK
  3. XELJANZ XR [Suspect]
     Active Substance: TOFACITINIB CITRATE
     Indication: RHEUMATOID ARTHRITIS
     Dosage: 11 MG, 1X/DAY
     Route: 048
     Dates: start: 20190105
  4. XELJANZ XR [Suspect]
     Active Substance: TOFACITINIB CITRATE
     Dosage: 11 MG, 1X/DAY
     Route: 048
     Dates: start: 20190501, end: 202007

REACTIONS (21)
  - Therapeutic product effect delayed [Unknown]
  - Illness [Unknown]
  - COVID-19 [Unknown]
  - Arthralgia [Unknown]
  - Cough [Recovered/Resolved]
  - Migraine [Unknown]
  - Decreased appetite [Recovered/Resolved]
  - Tibia fracture [Recovering/Resolving]
  - Fear of disease [Unknown]
  - Infection [Unknown]
  - Chest discomfort [Unknown]
  - Meniscus injury [Not Recovered/Not Resolved]
  - Intentional product misuse [Unknown]
  - Ulcer [Unknown]
  - Pyrexia [Recovered/Resolved]
  - Parosmia [Recovered/Resolved]
  - Pneumonia [Unknown]
  - Fall [Unknown]
  - Nasopharyngitis [Unknown]
  - Product dose omission in error [Unknown]
  - Feeling abnormal [Recovered/Resolved]

NARRATIVE: CASE EVENT DATE: 20201124
